FAERS Safety Report 9412176 (Version 4)
Quarter: 2016Q1

REPORT INFORMATION
  Report Type: Report from Study
  Country: CA (occurrence: CA)
  Receive Date: 20130722
  Receipt Date: 20160308
  Transmission Date: 20160526
  Serious: Yes (Other)
  Sender: FDA-Public Use
  Company Number: CA-ROCHE-1173287

PATIENT
  Age: 50 Year
  Sex: Female
  Weight: 76 kg

DRUGS (6)
  1. TRAMADOL. [Concomitant]
     Active Substance: TRAMADOL
  2. ACTEMRA [Suspect]
     Active Substance: TOCILIZUMAB
     Indication: RHEUMATOID ARTHRITIS
     Route: 042
     Dates: start: 20110214
  3. ACTEMRA [Suspect]
     Active Substance: TOCILIZUMAB
     Route: 042
     Dates: start: 20111214
  4. ACTEMRA [Suspect]
     Active Substance: TOCILIZUMAB
     Route: 042
     Dates: start: 20121219
  5. MELOXICAM. [Concomitant]
     Active Substance: MELOXICAM
  6. RABEPRAZOLE [Concomitant]
     Active Substance: RABEPRAZOLE

REACTIONS (27)
  - Nasopharyngitis [Recovered/Resolved]
  - Herpes zoster [Recovered/Resolved]
  - Breast pain [Recovered/Resolved]
  - Mastitis [Recovered/Resolved]
  - Animal bite [Unknown]
  - Tooth fracture [Unknown]
  - Malaise [Unknown]
  - Erythema [Recovered/Resolved]
  - Infected bite [Recovered/Resolved]
  - Cough [Not Recovered/Not Resolved]
  - Upper respiratory tract infection [Recovered/Resolved]
  - Influenza [Recovered/Resolved]
  - Rheumatoid arthritis [Not Recovered/Not Resolved]
  - Blood pressure fluctuation [Unknown]
  - Body temperature decreased [Unknown]
  - Breast inflammation [Recovered/Resolved]
  - Tooth disorder [Recovered/Resolved]
  - Blood pressure diastolic decreased [Unknown]
  - Breast mass [Recovered/Resolved]
  - Palpitations [Not Recovered/Not Resolved]
  - Insomnia [Unknown]
  - Infusion related reaction [Unknown]
  - Blood pressure increased [Unknown]
  - Nodule [Not Recovered/Not Resolved]
  - Blood cholesterol increased [Unknown]
  - Weight increased [Not Recovered/Not Resolved]
  - Laceration [Unknown]

NARRATIVE: CASE EVENT DATE: 201305
